FAERS Safety Report 24981517 (Version 1)
Quarter: 2025Q1

REPORT INFORMATION
  Report Type: Report from Study
  Country: ES (occurrence: ES)
  Receive Date: 20250218
  Receipt Date: 20250218
  Transmission Date: 20250408
  Serious: Yes (Other)
  Sender: PFIZER
  Company Number: ES-PFIZER INC-202500034871

PATIENT
  Age: 5 Decade
  Sex: Male

DRUGS (1)
  1. RITUXIMAB [Suspect]
     Active Substance: RITUXIMAB
     Indication: Dacryoadenitis acquired

REACTIONS (3)
  - Hidradenitis [Unknown]
  - Groin abscess [Unknown]
  - Condition aggravated [Unknown]
